FAERS Safety Report 7948366-X (Version None)
Quarter: 2011Q4

REPORT INFORMATION
  Report Type: 
  Country: None (occurrence: None)
  Receive Date: 20111130
  Receipt Date: 20111124
  Transmission Date: 20120403
  Serious: Yes (Death, Hospitalization)
  Sender: FDA-Public Use
  Company Number: FR-SHIRE-ALL1-2011-04607

PATIENT
  Age: 78 Year
  Sex: Male

DRUGS (12)
  1. RIFAMPIN AND ISONIAZID [Suspect]
     Dosage: 150 MG, 1X/DAY:QD
     Route: 048
     Dates: start: 20000330, end: 20000524
  2. DIAMICRON [Concomitant]
     Indication: PRODUCT USED FOR UNKNOWN INDICATION
     Dosage: UNK, UNKNOWN
     Route: 065
  3. RIFAMPIN AND ISONIAZID [Suspect]
     Indication: PLEUROPERICARDITIS
     Dosage: 300 MG, 1X/DAY:QD
     Route: 065
     Dates: start: 20000330, end: 20000524
  4. PROZAC [Suspect]
     Dosage: 40 MG, 1X/DAY:QD
     Route: 048
     Dates: start: 20000510, end: 20000517
  5. SOLIAN [Suspect]
     Indication: PRODUCT USED FOR UNKNOWN INDICATION
     Dosage: 50 MG, 2X/DAY:BID
     Route: 048
     Dates: start: 20000510, end: 20110517
  6. PROZAC [Suspect]
     Indication: PRODUCT USED FOR UNKNOWN INDICATION
     Dosage: 20 MG, 1X/DAY:QD
     Route: 048
     Dates: start: 20000427, end: 20000509
  7. PRAXINOR                           /00276601/ [Concomitant]
     Indication: PRODUCT USED FOR UNKNOWN INDICATION
     Dosage: UNK, UNKNOWN
     Route: 065
  8. MYAMBUTOL [Suspect]
     Indication: PLEUROPERICARDITIS
     Dosage: 1200 MG, UNKNOWN
     Route: 048
     Dates: start: 20000330, end: 20000524
  9. IMOVANE [Concomitant]
     Indication: PRODUCT USED FOR UNKNOWN INDICATION
     Dosage: UNK, UNKNOWN
     Route: 065
     Dates: start: 20000510, end: 20000517
  10. FORLAX                             /00754501/ [Concomitant]
     Indication: PRODUCT USED FOR UNKNOWN INDICATION
     Dosage: UNK, UNKNOWN
     Route: 065
  11. MIDODRINE HYDROCHLORIDE [Suspect]
     Indication: PRODUCT USED FOR UNKNOWN INDICATION
     Dosage: 2.5 MG, 3X/DAY:TID
     Route: 048
     Dates: start: 20000415, end: 20000517
  12. SECTRAL [Suspect]
     Indication: PRODUCT USED FOR UNKNOWN INDICATION
     Dosage: 100 MG, UNKNOWN
     Route: 048
     Dates: start: 20000315, end: 20000517

REACTIONS (3)
  - AGITATION [None]
  - DYSKINESIA [None]
  - CONFUSIONAL STATE [None]
